FAERS Safety Report 5427058-5 (Version None)
Quarter: 2007Q3

REPORT INFORMATION
  Report Type: 
  Country: None (occurrence: None)
  Receive Date: 20070824
  Receipt Date: 20070824
  Transmission Date: 20080115
  Serious: Yes (Hospitalization)
  Sender: FDA-Public Use
  Company Number: None

PATIENT
  Sex: Male
  Weight: 82 kg

DRUGS (11)
  1. TRIMETHOPRIM + SULFAMETHOXAZOLE [Suspect]
     Indication: KLEBSIELLA BACTERAEMIA
     Dosage: 2DS MORNING 1DS AFTERNOON 2DS EVENING, PO TID
     Route: 048
     Dates: start: 20070531, end: 20070602
  2. ATORVASTATIN CALCIUM [Concomitant]
  3. DOXAZOSIN MESYLATE [Concomitant]
  4. ENOXAPARIN SODIUM [Concomitant]
  5. LANSOPRAZOLE [Concomitant]
  6. INSULIN GLARGINE [Concomitant]
  7. ALBUTEROL [Concomitant]
  8. TIGECYCLINE [Concomitant]
  9. DOCUSATE [Concomitant]
  10. HYDROMORPHONE HCL [Concomitant]
  11. SENNA [Concomitant]

REACTIONS (1)
  - BLOOD CREATININE INCREASED [None]
